FAERS Safety Report 8968660 (Version 2)
Quarter: 2012Q4

REPORT INFORMATION
  Report Type: 
  Country: TR (occurrence: TR)
  Receive Date: 20121217
  Receipt Date: 20121231
  Transmission Date: 20130627
  Serious: Yes (Hospitalization)
  Sender: FDA-Public Use
  Company Number: TR-ABBOTT-12P-161-1022109-00

PATIENT
  Age: 58 Year
  Sex: Male
  Weight: 89 kg

DRUGS (6)
  1. HUMIRA [Suspect]
     Indication: RHEUMATOID ARTHRITIS
     Route: 058
     Dates: start: 20120904, end: 20121211
  2. NAPROSYN [Suspect]
     Indication: PRODUCT USED FOR UNKNOWN INDICATION
     Dosage: 1 x 1 daily
     Route: 048
     Dates: start: 20100101, end: 20121205
  3. SALAZOPYRIN [Concomitant]
     Indication: RHEUMATOID ARTHRITIS
     Route: 048
     Dates: start: 20100101
  4. EMTHEXATE [Concomitant]
     Indication: PRODUCT USED FOR UNKNOWN INDICATION
     Dosage: 2.5 mg X 6 / week
     Route: 048
     Dates: start: 20100101
  5. NAPROSYN [Concomitant]
     Indication: PRODUCT USED FOR UNKNOWN INDICATION
     Dosage: 1 x 1 daily
     Route: 048
     Dates: start: 20100101, end: 20121205
  6. PREDNOL [Concomitant]
     Indication: PRODUCT USED FOR UNKNOWN INDICATION
     Route: 048
     Dates: start: 20090101

REACTIONS (4)
  - Asthenia [Recovering/Resolving]
  - Dizziness [Recovering/Resolving]
  - Rectal haemorrhage [Recovering/Resolving]
  - Gastrointestinal haemorrhage [Recovering/Resolving]
